FAERS Safety Report 23567992 (Version 7)
Quarter: 2025Q1

REPORT INFORMATION
  Report Type: Spontaneous
  Country: US (occurrence: US)
  Receive Date: 20240226
  Receipt Date: 20250115
  Transmission Date: 20250409
  Serious: Yes (Death, Other)
  Sender: SANOFI AVENTIS
  Company Number: US-SA-SAC20240223000937

PATIENT
  Age: 75 Year
  Sex: Female

DRUGS (6)
  1. DUPIXENT [Suspect]
     Active Substance: DUPILUMAB
     Indication: Asthma
     Route: 058
     Dates: start: 202401, end: 202401
  2. DUPIXENT [Suspect]
     Active Substance: DUPILUMAB
     Dosage: 300 MG, QOW
     Route: 058
     Dates: start: 202402
  3. FUROSEMIDE [Concomitant]
     Active Substance: FUROSEMIDE
  4. BENADRYL [Concomitant]
     Active Substance: DIPHENHYDRAMINE HYDROCHLORIDE
  5. METRONIDAZOLE [Concomitant]
     Active Substance: METRONIDAZOLE
  6. BREZTRI [Concomitant]
     Active Substance: BUDESONIDE\FORMOTEROL\GLYCOPYRROLATE

REACTIONS (13)
  - Death [Fatal]
  - Dyspnoea [Recovering/Resolving]
  - Increased viscosity of upper respiratory secretion [Unknown]
  - Impaired quality of life [Unknown]
  - Chest discomfort [Recovered/Resolved]
  - Sinus disorder [Recovering/Resolving]
  - Rhinorrhoea [Recovering/Resolving]
  - Nasal congestion [Recovering/Resolving]
  - Productive cough [Recovering/Resolving]
  - Product dose omission issue [Recovering/Resolving]
  - Alopecia [Recovering/Resolving]
  - Weight increased [Recovering/Resolving]
  - Sinus congestion [Unknown]

NARRATIVE: CASE EVENT DATE: 20240101
